FAERS Safety Report 4655946-6 (Version None)
Quarter: 2005Q2

REPORT INFORMATION
  Report Type: 
  Country: None (occurrence: None)
  Receive Date: 20050505
  Receipt Date: 20050422
  Transmission Date: 20051028
  Serious: Yes (Hospitalization)
  Sender: FDA-Public Use
  Company Number: 2005064118

PATIENT
  Age: 81 Year
  Sex: Female

DRUGS (11)
  1. AMLODIPINE [Suspect]
     Indication: ILL-DEFINED DISORDER
     Dosage: 10 MG (10 MG, 1 IN 1 D), ORAL
     Route: 048
     Dates: end: 20050212
  2. DAPAMAX (INDAPAMIDE) [Suspect]
     Indication: ILL-DEFINED DISORDER
     Dosage: 1.5 MG (1.5 MG, 1 IN 1 D), ORAL
     Route: 048
     Dates: end: 20050212
  3. WARCLAV (AMOXICILLIN, CLAVULANATE POTASSIUM) [Suspect]
     Indication: ILL-DEFINED DISORDER
     Dosage: ORAL
     Route: 048
     Dates: start: 20050205, end: 20050211
  4. DOMPERIDONE (DOMPERIDONE) [Suspect]
     Indication: ILL-DEFINED DISORDER
     Dosage: 3 DOSE FORMS (1 IN 1 D), ORAL
     Route: 048
     Dates: end: 20050212
  5. FERROUS SULFATE TAB [Suspect]
     Indication: ILL-DEFINED DISORDER
     Dosage: 1 DOSE FORM (1 IN 1 D), ORAL
     Route: 048
     Dates: end: 20050212
  6. DIOSMIN (DIOSMIN) [Suspect]
     Indication: ILL-DEFINED DISORDER
     Dosage: 1 GRAM (500 MG, 1 IN 1 D), ORAL
     Route: 048
     Dates: end: 20050212
  7. ACETYLSALICYLIC ACID SRT [Concomitant]
  8. INSULIN LISPRO (INSULIN LISPRO) [Concomitant]
  9. RILMENIDINE (RILMENIDINE) [Concomitant]
  10. PERINDOPRIL (PERINDOPRIL) [Concomitant]
  11. GALANTAMINE (GALANTAMINE) [Concomitant]

REACTIONS (4)
  - DEHYDRATION [None]
  - DISORIENTATION [None]
  - HYPOKALAEMIA [None]
  - HYPONATRAEMIA [None]
